FAERS Safety Report 8764696 (Version 1)
Quarter: 2012Q4

REPORT INFORMATION
  Report Type: 
  Country: GB (occurrence: GB)
  Receive Date: 20120831
  Receipt Date: 20120831
  Transmission Date: 20130627
  Serious: Yes (Hospitalization)
  Sender: FDA-Public Use
  Company Number: GB-PFIZER INC-2012215029

PATIENT
  Age: 83 Year
  Sex: Female

DRUGS (8)
  1. IBUPROFEN [Suspect]
     Indication: ANALGESIC THERAPY
     Dosage: 400 mg, UNK
     Route: 048
     Dates: start: 20120701, end: 20120807
  2. CALCICHEW-D3 MITE [Concomitant]
  3. CLOMETHIAZOLE [Concomitant]
  4. CORSODYL [Concomitant]
  5. DOCUSATE [Concomitant]
  6. LACTULOSE [Concomitant]
  7. OMEPRAZOLE [Concomitant]
  8. RISEDRONATE [Concomitant]

REACTIONS (1)
  - Duodenal ulcer [Not Recovered/Not Resolved]
